FAERS Safety Report 5120029-8 (Version None)
Quarter: 2006Q3

REPORT INFORMATION
  Report Type: 
  Country: None (occurrence: None)
  Receive Date: 20060929
  Receipt Date: 20060915
  Transmission Date: 20061208
  Serious: Yes (Hospitalization, Other)
  Sender: FDA-Public Use
  Company Number: 2005JP001398

PATIENT
  Age: 64 Year
  Sex: Male
  Weight: 68 kg

DRUGS (3)
  1. PROGRAF [Suspect]
     Indication: MYASTHENIA GRAVIS
     Dosage: 1.00 MG, BID, ORAL
     Route: 048
     Dates: start: 20020723, end: 20041222
  2. PYRIDOSTIGMINE BROMIDE [Suspect]
     Dosage: 120.00 MG, UID/QD, ORAL
     Route: 048
     Dates: start: 20020701, end: 20041222
  3. BUFFERIN [Suspect]

REACTIONS (16)
  - BIOPSY KIDNEY ABNORMAL [None]
  - BLOOD URINE PRESENT [None]
  - DEHYDRATION [None]
  - DIABETES MELLITUS [None]
  - DIARRHOEA [None]
  - GLYCOSYLATED HAEMOGLOBIN INCREASED [None]
  - HYPERPLASIA [None]
  - INFLAMMATION [None]
  - KIDNEY FIBROSIS [None]
  - MUSCLE SPASMS [None]
  - ORAL INTAKE REDUCED [None]
  - RENAL IMPAIRMENT [None]
  - RENAL TUBULAR ATROPHY [None]
  - SEGMENTED HYALINIZING VASCULITIS [None]
  - TUBULOINTERSTITIAL NEPHRITIS [None]
  - URINARY CASTS [None]
